FAERS Safety Report 14459527 (Version 1)
Quarter: 2018Q1

REPORT INFORMATION
  Report Type: Other
  Country: IT (occurrence: IT)
  Receive Date: 20180130
  Receipt Date: 20180130
  Transmission Date: 20180509
  Serious: Yes (Hospitalization)
  Sender: FDA-Public Use
  Company Number: IT-GLENMARK PHARMACEUTICALS-2017GMK031301

PATIENT

DRUGS (5)
  1. NOZINAN                            /00038601/ [Suspect]
     Active Substance: LEVOMEPROMAZINE
     Indication: INTENTIONAL SELF-INJURY
     Dosage: 1 DF, IN TOTAL
     Route: 048
     Dates: start: 20170427, end: 20170427
  2. STILNOX [Suspect]
     Active Substance: ZOLPIDEM TARTRATE
     Indication: INTENTIONAL SELF-INJURY
     Dosage: 1 DF, IN TOTAL
     Route: 048
     Dates: start: 20170427, end: 20170427
  3. GABAPENTIN. [Suspect]
     Active Substance: GABAPENTIN
     Indication: PRODUCT USED FOR UNKNOWN INDICATION
     Dosage: 1 DF, IN TOTAL
     Route: 048
     Dates: start: 20170427, end: 20170427
  4. TALOFEN [Suspect]
     Active Substance: PROMAZINE HYDROCHLORIDE
     Indication: INTENTIONAL SELF-INJURY
     Dosage: 1 GTT, IN TOTAL
     Route: 048
     Dates: start: 20170427, end: 20170427
  5. DIAZEPAM. [Suspect]
     Active Substance: DIAZEPAM
     Indication: INTENTIONAL SELF-INJURY
     Dosage: 1 GTT, IN TOTAL
     Route: 048
     Dates: start: 20170427, end: 20170427

REACTIONS (6)
  - Alcohol interaction [Unknown]
  - Coma [Unknown]
  - Hypoxia [Unknown]
  - Bradypnoea [Unknown]
  - Electrocardiogram QT prolonged [Unknown]
  - Drug abuse [Unknown]

NARRATIVE: CASE EVENT DATE: 20170427
